FAERS Safety Report 15733471 (Version 2)
Quarter: 2019Q1

REPORT INFORMATION
  Report Type: Spontaneous
  Country: TR (occurrence: TR)
  Receive Date: 20181218
  Receipt Date: 20190130
  Transmission Date: 20190417
  Serious: Yes (Other)
  Sender: FDA-Public Use
  Company Number: TR-TAKEDA-2018TUS035626

PATIENT
  Age: 19 Year
  Sex: Male

DRUGS (1)
  1. ENTYVIO [Suspect]
     Active Substance: VEDOLIZUMAB
     Indication: COLITIS ULCERATIVE
     Dosage: 300 MILLIGRAM
     Route: 042
     Dates: start: 2018

REACTIONS (1)
  - Pneumothorax traumatic [Recovered/Resolved]

NARRATIVE: CASE EVENT DATE: 20181208
